FAERS Safety Report 5068919-9 (Version None)
Quarter: 2006Q3

REPORT INFORMATION
  Report Type: 
  Country: None (occurrence: None)
  Receive Date: 20060717
  Receipt Date: 20060112
  Transmission Date: 20061208
  Serious: Yes (Other)
  Sender: FDA-Public Use
  Company Number: 2006000113

PATIENT
  Age: 69 Year
  Sex: Male

DRUGS (4)
  1. TARCEVA [Suspect]
     Indication: NON-SMALL CELL LUNG CANCER
     Dosage: 150 MG (QD), ORAL
     Route: 048
  2. HYDROCORTISONE [Concomitant]
  3. DURAGESIC-100 [Concomitant]
  4. DIGOXIN [Concomitant]

REACTIONS (5)
  - DEPRESSION [None]
  - GASTROINTESTINAL TUBE INSERTION [None]
  - GENITAL INFECTION FUNGAL [None]
  - INTERSTITIAL LUNG DISEASE [None]
  - PNEUMONIA PNEUMOCOCCAL [None]
